FAERS Safety Report 6852573-7 (Version None)
Quarter: 2010Q3

REPORT INFORMATION
  Report Type: 
  Country: None (occurrence: None)
  Receive Date: 20100717
  Receipt Date: 20071116
  Transmission Date: 20110219
  Serious: No
  Sender: FDA-Public Use
  Company Number: US-PFIZER INC-2007098902

PATIENT
  Sex: Female
  Weight: 66.7 kg

DRUGS (6)
  1. CHANTIX [Suspect]
     Indication: SMOKING CESSATION THERAPY
     Dates: start: 20071003
  2. NEXIUM [Concomitant]
  3. PREMPRO [Concomitant]
  4. ADVAIR DISKUS 100/50 [Concomitant]
  5. VITAMINS [Concomitant]
  6. LORAZEPAM [Concomitant]
     Indication: ANXIETY

REACTIONS (6)
  - CONSTIPATION [None]
  - DECREASED APPETITE [None]
  - DRUG INEFFECTIVE [None]
  - NAUSEA [None]
  - SLEEP DISORDER [None]
  - WEIGHT DECREASED [None]
